FAERS Safety Report 6174608-X (Version None)
Quarter: 2009Q2

REPORT INFORMATION
  Report Type: 
  Country: None (occurrence: None)
  Receive Date: 20090430
  Receipt Date: 20080815
  Transmission Date: 20091009
  Serious: No
  Sender: FDA-Public Use
  Company Number: US-ASTRAZENECA-2008UW16737

PATIENT
  Age: 69 Year
  Sex: Female

DRUGS (6)
  1. NEXIUM [Suspect]
     Indication: INFLAMMATION
     Route: 048
     Dates: start: 20071101
  2. LISINOPRIL [Concomitant]
  3. HYDROCHLOROTHIAZIDE [Concomitant]
  4. VERAPAMIL [Concomitant]
     Dosage: 240 MG
  5. LEVOTHYROXINE SODIUM [Concomitant]
  6. CALCIUM SUPPLEMENT [Concomitant]

REACTIONS (1)
  - OSTEOPENIA [None]
